FAERS Safety Report 4300617-9 (Version None)
Quarter: 2004Q1

REPORT INFORMATION
  Report Type: 
  Country: None (occurrence: None)
  Receive Date: 20040218
  Receipt Date: 20040210
  Transmission Date: 20041129
  Serious: Yes (Death)
  Sender: FDA-Public Use
  Company Number: 163-20785-03110430

PATIENT
  Age: 75 Year
  Sex: Male
  Weight: 76.6579 kg

DRUGS (5)
  1. THALOMID [Suspect]
     Indication: PROSTATE CANCER
     Dosage: 50 MG, DAILY, ORAL
     Route: 048
     Dates: start: 20031021, end: 20031117
  2. ZOMETA [Concomitant]
  3. TAXOTERE [Concomitant]
  4. COMPAZINE (PROCHLOROPERAZINE EDISYLATE) [Concomitant]
  5. ERYTHROPOIETIN (ERYTHROPOIETIN) [Concomitant]

REACTIONS (13)
  - CHILLS [None]
  - COUGH [None]
  - DIZZINESS [None]
  - DYSPNOEA [None]
  - HAEMATOCRIT DECREASED [None]
  - HAEMOGLOBIN DECREASED [None]
  - MALIGNANT NEOPLASM PROGRESSION [None]
  - MULTI-ORGAN FAILURE [None]
  - PROSTATE CANCER [None]
  - UPPER RESPIRATORY TRACT INFECTION [None]
  - URINARY TRACT INFECTION [None]
  - WEIGHT INCREASED [None]
  - WHEEZING [None]
